FAERS Safety Report 8804721 (Version 1)
Quarter: 2012Q4

REPORT INFORMATION
  Report Type: 
  Country: IN (occurrence: IN)
  Receive Date: 20120924
  Receipt Date: 20120924
  Transmission Date: 20130627
  Serious: Yes (Death)
  Sender: FDA-Public Use
  Company Number: PHHY2012IN082283

PATIENT
  Age: 55 Year
  Sex: Male

DRUGS (1)
  1. SEBIVO [Suspect]
     Indication: HEPATITIS

REACTIONS (5)
  - Death [Fatal]
  - Abdominal distension [Unknown]
  - Decreased appetite [Unknown]
  - Dyspepsia [Unknown]
  - Jaundice [Unknown]
